FAERS Safety Report 8494795-8 (Version None)
Quarter: 2012Q3

REPORT INFORMATION
  Report Type: 
  Country: None (occurrence: None)
  Receive Date: 20120709
  Receipt Date: 20120629
  Transmission Date: 20120928
  Serious: Yes (Hospitalization, Other)
  Sender: FDA-Public Use
  Company Number: US-BAYER-2012-011975

PATIENT
  Age: 29 Year
  Sex: Female
  Weight: 58.503 kg

DRUGS (4)
  1. YASMIN [Suspect]
     Indication: CONTRACEPTION
     Dosage: UNK
     Dates: start: 20050325, end: 20080624
  2. MULTI-VITAMIN [Concomitant]
     Indication: MEDICAL DIET
  3. ENOXAPARIN [Concomitant]
     Dosage: UNK
     Dates: start: 20060101
  4. DOXYCYCLINE HYCLATE [Concomitant]
     Dosage: UNK
     Dates: start: 20060101

REACTIONS (6)
  - PAIN [None]
  - ABORTION SPONTANEOUS [None]
  - INJURY [None]
  - FATIGUE [None]
  - PULMONARY EMBOLISM [None]
  - ACTIVITIES OF DAILY LIVING IMPAIRED [None]
